FAERS Safety Report 24895998 (Version 1)
Quarter: 2025Q1

REPORT INFORMATION
  Report Type: Report from Study
  Country: CO (occurrence: CO)
  Receive Date: 20250128
  Receipt Date: 20250128
  Transmission Date: 20250409
  Serious: Yes (Disabling)
  Sender: EISAI
  Company Number: CO-Eisai-EC-2025-182979

PATIENT
  Age: 70 Year
  Sex: Female
  Weight: 66.0 kg

DRUGS (6)
  1. LENVIMA [Suspect]
     Active Substance: LENVATINIB
     Indication: Thyroid cancer
     Route: 048
     Dates: start: 20240321, end: 20240327
  2. LENVIMA [Suspect]
     Active Substance: LENVATINIB
     Route: 048
     Dates: start: 20240328, end: 20240425
  3. LENVIMA [Suspect]
     Active Substance: LENVATINIB
     Route: 048
     Dates: end: 20240801
  4. LENVIMA [Suspect]
     Active Substance: LENVATINIB
     Route: 048
     Dates: start: 20231103, end: 20231120
  5. IRBESARTAN [Concomitant]
     Active Substance: IRBESARTAN
     Indication: Product used for unknown indication
  6. IRBESARTAN [Concomitant]
     Active Substance: IRBESARTAN

REACTIONS (3)
  - Blindness unilateral [Not Recovered/Not Resolved]
  - Ophthalmic vascular thrombosis [Not Recovered/Not Resolved]
  - Hypertension [Not Recovered/Not Resolved]
